FAERS Safety Report 13733711 (Version 1)
Quarter: 2017Q3

REPORT INFORMATION
  Report Type: Spontaneous
  Country: US (occurrence: US)
  Receive Date: 20170707
  Receipt Date: 20170707
  Transmission Date: 20171127
  Serious: Yes (Hospitalization)
  Sender: FDA-Public Use
  Company Number: US-BIOMARINAP-US-2017-114576

PATIENT
  Age: 41 Year
  Sex: Female

DRUGS (4)
  1. KUVAN [Suspect]
     Active Substance: SAPROPTERIN DIHYDROCHLORIDE
     Indication: PHENYLKETONURIA
     Dosage: 900 MG, QD
     Route: 048
     Dates: start: 20140926
  2. CARBINOXAMINE [Concomitant]
     Active Substance: CARBINOXAMINE
     Indication: PRODUCT USED FOR UNKNOWN INDICATION
  3. CARBAMAZEPINE. [Concomitant]
     Active Substance: CARBAMAZEPINE
     Indication: PRODUCT USED FOR UNKNOWN INDICATION
  4. STRATTERA [Concomitant]
     Active Substance: ATOMOXETINE HYDROCHLORIDE
     Indication: PRODUCT USED FOR UNKNOWN INDICATION

REACTIONS (1)
  - Knee operation [Recovered/Resolved]

NARRATIVE: CASE EVENT DATE: 20170627
